FAERS Safety Report 7417629-9 (Version None)
Quarter: 2011Q2

REPORT INFORMATION
  Report Type: 
  Country: None (occurrence: None)
  Receive Date: 20110415
  Receipt Date: 20110404
  Transmission Date: 20111010
  Serious: Yes (Hospitalization)
  Sender: FDA-Public Use
  Company Number: PHHY2010JP76061

PATIENT
  Sex: Female
  Weight: 46 kg

DRUGS (4)
  1. THYRADIN S [Concomitant]
     Indication: POST PROCEDURAL HYPOTHYROIDISM
     Dosage: 100 UG, UNK
     Route: 048
  2. AMLODIN [Concomitant]
     Indication: HYPERTENSION
     Dosage: 2.5 MG,
     Route: 048
  3. LAMISIL [Suspect]
     Dosage: 125 MG/DAY
     Route: 048
     Dates: start: 20100619, end: 20100712
  4. YODEL [Concomitant]
     Indication: CONSTIPATION
     Dosage: 240 MG, UNK
     Route: 048

REACTIONS (12)
  - LIVER DISORDER [None]
  - GALLBLADDER DISORDER [None]
  - OCULAR ICTERUS [None]
  - HEPATIC ENZYME INCREASED [None]
  - YELLOW SKIN [None]
  - FAECES DISCOLOURED [None]
  - RASH [None]
  - CHOLESTASIS [None]
  - URINE COLOUR ABNORMAL [None]
  - HEPATIC NECROSIS [None]
  - BLOOD BILIRUBIN INCREASED [None]
  - PAPULE [None]
